FAERS Safety Report 19145606 (Version 2)
Quarter: 2025Q2

REPORT INFORMATION
  Report Type: Spontaneous
  Country: US (occurrence: US)
  Receive Date: 20210416
  Receipt Date: 20250627
  Transmission Date: 20250717
  Serious: Yes (Life-Threatening, Hospitalization, Other)
  Sender: AUROBINDO
  Company Number: US-MYLANLABS-2021M1022405

PATIENT
  Age: 19 Year
  Sex: Female

DRUGS (6)
  1. HYDROXYCHLOROQUINE [Suspect]
     Active Substance: HYDROXYCHLOROQUINE
     Indication: COVID-19
     Route: 065
  2. DEFERASIROX [Suspect]
     Active Substance: DEFERASIROX
     Indication: Iron overload
     Dosage: 1800 MILLIGRAM, ONCE A DAY
     Route: 065
  3. DEFERASIROX [Suspect]
     Active Substance: DEFERASIROX
     Indication: Chelation therapy
  4. ENOXAPARIN [Concomitant]
     Active Substance: ENOXAPARIN
     Indication: Thrombosis
     Route: 065
  5. LACTULOSE [Concomitant]
     Active Substance: LACTULOSE
     Indication: Hyperammonaemia
     Route: 065
  6. NEOMYCIN [Concomitant]
     Active Substance: NEOMYCIN
     Indication: Hyperammonaemia
     Route: 065

REACTIONS (8)
  - Cytotoxic oedema [Unknown]
  - Drug-induced liver injury [Recovering/Resolving]
  - Hepatic failure [Recovering/Resolving]
  - Hepatic encephalopathy [Recovering/Resolving]
  - Multiple organ dysfunction syndrome [Recovered/Resolved]
  - Shock [Recovering/Resolving]
  - Off label use [Unknown]
  - Toxicity to various agents [Unknown]
